FAERS Safety Report 4897124-1 (Version None)
Quarter: 2006Q1

REPORT INFORMATION
  Report Type: 
  Country: None (occurrence: None)
  Receive Date: 20060127
  Receipt Date: 20060123
  Transmission Date: 20060701
  Serious: Yes (Hospitalization)
  Sender: FDA-Public Use
  Company Number: FRWYE325123JAN06

PATIENT
  Age: 86 Year
  Sex: Female

DRUGS (5)
  1. EFFEXOR XR [Suspect]
     Indication: DEPRESSION
     Dosage: 75 MG 1X PER 1 DAY ORAL
     Route: 048
     Dates: end: 20051202
  2. MIANSERIN HYDROCHLORIDE (MIANSERIN HYDROCHLORIDE, , 0) [Suspect]
     Dosage: 1 DOSE 1X PER 1 DAY ORAL
     Route: 048
     Dates: end: 20051202
  3. ZOPICLONE (ZOPICLONE, , 0) [Suspect]
     Dosage: 7.5 MG TOTAL DAILY ORAL
     Route: 048
     Dates: end: 20051202
  4. INEXIUM (ESOMEPRAZOLE) [Concomitant]
  5. VERAPAMIL [Concomitant]

REACTIONS (2)
  - CYTOLYTIC HEPATITIS [None]
  - PULMONARY EMBOLISM [None]
